FAERS Safety Report 8198938 (Version 10)
Quarter: 2014Q2

REPORT INFORMATION
  Report Type: Spontaneous
  Country: US (occurrence: US)
  Receive Date: 20111025
  Receipt Date: 20140403
  Transmission Date: 20141212
  Serious: Yes (Hospitalization)
  Sender: FDA-Public Use
  Company Number: US-ACTELION-A-US2011-55875

PATIENT
  Age: 2 Year
  Sex: Female

DRUGS (8)
  1. TRACLEER [Suspect]
     Indication: PULMONARY ARTERIAL HYPERTENSION
     Dosage: 15.625 MG, BID
     Route: 048
  2. REMODULIN [Suspect]
     Dosage: 70 NG/KG, PER MIN
     Route: 041
  3. REVATIO [Concomitant]
     Dosage: 20 MG, TID
  4. ADCIRCA [Concomitant]
  5. ASA [Concomitant]
     Dosage: 40 MG, UNK
  6. XOPENEX [Concomitant]
     Dosage: 45 MCG, 2 PUFFS Q6HRS
     Route: 055
  7. LASIX [Concomitant]
     Dosage: 10 MG, OD
     Route: 048
  8. OXYGEN [Concomitant]

REACTIONS (14)
  - Device related infection [Recovered/Resolved]
  - Blood culture positive [Recovered/Resolved]
  - Catheter placement [Recovered/Resolved]
  - Device damage [Unknown]
  - Respiratory tract infection [Unknown]
  - Pyrexia [Unknown]
  - Viral infection [Unknown]
  - Device damage [Unknown]
  - Vomiting [Recovered/Resolved]
  - Diarrhoea [Recovered/Resolved]
  - Urine output decreased [Recovered/Resolved]
  - Hypertension [Recovered/Resolved]
  - Respiratory syncytial virus test positive [Unknown]
  - Decreased appetite [Recovered/Resolved]
